FAERS Safety Report 8699837 (Version 3)
Quarter: 2013Q3

REPORT INFORMATION
  Report Type: Spontaneous
  Country: US (occurrence: US)
  Receive Date: 20120802
  Receipt Date: 20130705
  Transmission Date: 20140515
  Serious: No
  Sender: FDA-Public Use
  Company Number: US-ASTRAZENECA-2012SE44584

PATIENT
  Age: 69 Year
  Sex: Female

DRUGS (1)
  1. SYMBICORT PMDI [Suspect]
     Route: 055

REACTIONS (6)
  - Multiple allergies [Unknown]
  - Increased upper airway secretion [Unknown]
  - Nasopharyngitis [Unknown]
  - Nasal disorder [Unknown]
  - Dysphonia [Unknown]
  - Cough [Unknown]
